FAERS Safety Report 10079726 (Version 3)
Quarter: 2014Q2

REPORT INFORMATION
  Report Type: Spontaneous
  Country: IE (occurrence: IE)
  Receive Date: 20140415
  Receipt Date: 20140520
  Transmission Date: 20141212
  Serious: Yes (Hospitalization)
  Sender: FDA-Public Use
  Company Number: IE-NOVOPROD-404932

PATIENT
  Age: 61 Year
  Sex: Male

DRUGS (2)
  1. NOVORAPID [Suspect]
     Indication: TYPE 1 DIABETES MELLITUS
     Dosage: 7 IU, TID
     Route: 058
     Dates: start: 20121201
  2. LANTUS [Suspect]
     Indication: TYPE 1 DIABETES MELLITUS
     Dosage: 14 IU, QD (AT NIGHT)
     Route: 058
     Dates: start: 2012

REACTIONS (9)
  - Hyponatraemia [Recovered/Resolved]
  - Hyperglycaemia [Recovered/Resolved]
  - Blood ketone body [Recovered/Resolved]
  - Vomiting [Recovered/Resolved]
  - Diabetes mellitus inadequate control [Recovered/Resolved]
  - Wrong technique in drug usage process [Unknown]
  - Drug dose omission [Recovered/Resolved]
  - Diabetic ketoacidosis [Recovered/Resolved]
  - Drug dose omission [Recovered/Resolved]
